FAERS Safety Report 9882968 (Version 1)
Quarter: 2014Q1

REPORT INFORMATION
  Report Type: Spontaneous
  Country: NL (occurrence: None)
  Receive Date: 20140204
  Receipt Date: 20140204
  Transmission Date: 20141002
  Serious: Yes (Hospitalization)
  Sender: FDA-Public Use
  Company Number: FK201400345

PATIENT
  Age: 64 Year
  Sex: Female

DRUGS (3)
  1. CARBOPLATIN (MANUFACTURER UNKNOWN) (CARBOPLATIN) (CARBOPLATIN) [Suspect]
     Indication: LUNG CANCER METASTATIC
  2. PACLITAXEL (MANUFACTURER UNKNOWN) (PACLITAXEL) (PACLITAXEL) [Suspect]
     Indication: LUNG CANCER METASTATIC
     Dosage: 200 MG/M2, 4 CYCLES
  3. BEVACIZUMAB (BEVACIZUMAB) (BEVACIZUMAB) [Suspect]
     Indication: LUNG CANCER METASTATIC
     Dosage: 15 MG/KG, FOR 21 CYCLES

REACTIONS (6)
  - Proteinuria [None]
  - Anaemia [None]
  - Bacterial infection [None]
  - Peripheral sensory neuropathy [None]
  - Hypertension [None]
  - Pulmonary cavitation [None]
